FAERS Safety Report 6090110-8 (Version None)
Quarter: 2009Q1

REPORT INFORMATION
  Report Type: 
  Country: None (occurrence: None)
  Receive Date: 20090224
  Receipt Date: 20090220
  Transmission Date: 20090719
  Serious: Yes (Death)
  Sender: FDA-Public Use
  Company Number: SI-ABBOTT-09P-261-0557318-00

PATIENT
  Sex: Male
  Weight: 68 kg

DRUGS (2)
  1. KALETRA [Suspect]
     Indication: HIV INFECTION
     Dosage: 800/200MG DAILY, 2 TABLETS TWICE PER DAY
     Route: 048
     Dates: start: 20080918, end: 20081017
  2. ABC/3TC [Concomitant]
     Indication: ANTIRETROVIRAL THERAPY

REACTIONS (2)
  - CEREBRAL TOXOPLASMOSIS [None]
  - SEPTIC SHOCK [None]
